FAERS Safety Report 4673055-7 (Version None)
Quarter: 2005Q2

REPORT INFORMATION
  Report Type: 
  Country: None (occurrence: None)
  Receive Date: 20050523
  Receipt Date: 20001109
  Transmission Date: 20051028
  Serious: Yes (Hospitalization)
  Sender: FDA-Public Use
  Company Number: 2000-00543

PATIENT
  Age: 46 Year
  Sex: Male
  Weight: 70 kg

DRUGS (7)
  1. DAUNOXOME [Suspect]
     Indication: KAPOSI'S SARCOMA
     Dosage: INTRAVENOUS
     Dates: start: 19930804
  2. SELEN (SELEN MED NATURLIGT E-VITAMIN) [Concomitant]
  3. WOBENZYME (WOBENZYME) [Concomitant]
  4. ZINK (ZINC) [Concomitant]
  5. COTRIMOXAZOL (BACTRIM) [Concomitant]
  6. DIDANOSINE [Concomitant]
  7. HYDROXYZIN (HYDROXYZINE) [Concomitant]

REACTIONS (1)
  - NON-HODGKIN'S LYMPHOMA [None]
